FAERS Safety Report 19853724 (Version 7)
Quarter: 2022Q2

REPORT INFORMATION
  Report Type: Spontaneous
  Country: CA (occurrence: CA)
  Receive Date: 20210919
  Receipt Date: 20220411
  Transmission Date: 20220721
  Serious: Yes (Other)
  Sender: FDA-Public Use
  Company Number: CA-CELLTRION INC.-2021CA012614

PATIENT

DRUGS (8)
  1. INFLECTRA [Suspect]
     Active Substance: INFLIXIMAB-DYYB
     Indication: Colitis ulcerative
     Dosage: 5MG/KG WEEKS 0, 2,6 THEN  EVERY 8 WEEKS
     Route: 042
     Dates: start: 20210729, end: 20210909
  2. INFLECTRA [Suspect]
     Active Substance: INFLIXIMAB-DYYB
     Dosage: 420 MG
     Route: 042
     Dates: start: 20210812
  3. INFLECTRA [Suspect]
     Active Substance: INFLIXIMAB-DYYB
     Dosage: 5MG/KG WEEKS 0, 2,6 THEN  EVERY 8 WEEKS
     Route: 042
     Dates: start: 20210909
  4. INFLECTRA [Suspect]
     Active Substance: INFLIXIMAB-DYYB
     Dosage: 5MG/KG, EVERY 8 WEEKS
     Route: 042
     Dates: start: 20211104, end: 20220105
  5. INFLECTRA [Suspect]
     Active Substance: INFLIXIMAB-DYYB
     Dosage: 5MG/KG WEEKS 0, 2,6 THEN  EVERY 8 WEEKS
     Route: 042
     Dates: start: 20211108
  6. INFLECTRA [Suspect]
     Active Substance: INFLIXIMAB-DYYB
     Dosage: 5MG/KG WEEKS 0, 2,6 THEN  EVERY 8 WEEKS
     Route: 042
     Dates: start: 20220105
  7. INFLECTRA [Suspect]
     Active Substance: INFLIXIMAB-DYYB
     Dosage: 5MG/KG EVERY 6 WEEKS
     Route: 042
     Dates: start: 20220217
  8. INFLECTRA [Suspect]
     Active Substance: INFLIXIMAB-DYYB
     Dosage: 5MG/KG EVERY 6 WEEKS
     Route: 042
     Dates: start: 20220331

REACTIONS (8)
  - Ovarian cyst [Not Recovered/Not Resolved]
  - Condition aggravated [Recovered/Resolved]
  - Feeling cold [Unknown]
  - Nausea [Recovering/Resolving]
  - Vomiting [Not Recovered/Not Resolved]
  - Incorrect dose administered [Unknown]
  - Off label use [Unknown]
  - Weight decreased [Unknown]

NARRATIVE: CASE EVENT DATE: 20210101
